FAERS Safety Report 6309731-X (Version None)
Quarter: 2009Q3

REPORT INFORMATION
  Report Type: 
  Country: None (occurrence: None)
  Receive Date: 20090814
  Receipt Date: 20090811
  Transmission Date: 20100115
  Serious: Yes (Death, Other)
  Sender: FDA-Public Use
  Company Number: JP-BAYER-200911582BYL

PATIENT
  Age: 37 Year
  Sex: Female
  Weight: 43 kg

DRUGS (6)
  1. FLUDARA [Suspect]
     Indication: ACUTE LYMPHOCYTIC LEUKAEMIA
     Dosage: AS USED: 38 MG  UNIT DOSE: 50 MG
     Route: 042
     Dates: start: 20090115, end: 20090120
  2. CYCLOPHOSPHAMIDE [Concomitant]
     Indication: ACUTE LYMPHOCYTIC LEUKAEMIA
     Dosage: AS USED: 2000 MG
     Route: 042
     Dates: start: 20090116, end: 20090116
  3. SANDIMMUNE [Concomitant]
     Indication: PROPHYLAXIS AGAINST GRAFT VERSUS HOST DISEASE
     Dosage: AS USED: 120 MG
     Route: 042
     Dates: start: 20090121, end: 20090204
  4. NEUTROGIN [Concomitant]
     Dosage: AS USED: 300 ?G/D
     Route: 042
     Dates: start: 20090124, end: 20090204
  5. CONCENTRATED RED CELLS [Concomitant]
     Indication: PACKED RED BLOOD CELL TRANSFUSION
     Route: 042
     Dates: start: 20090116, end: 20090201
  6. PLATELET CONCENTRATE [Concomitant]
     Indication: PLATELET TRANSFUSION
     Route: 042
     Dates: start: 20090118, end: 20090203

REACTIONS (2)
  - SEPSIS [None]
  - VENOOCCLUSIVE LIVER DISEASE [None]
